FAERS Safety Report 13736560 (Version 2)
Quarter: 2025Q3

REPORT INFORMATION
  Report Type: Spontaneous
  Country: US (occurrence: US)
  Receive Date: 20170710
  Receipt Date: 20250828
  Transmission Date: 20251021
  Serious: Yes (Life-Threatening, Other)
  Sender: QILU ANTIBIOTICS PHARMACEUTICAL
  Company Number: None

PATIENT
  Age: 5 Year
  Sex: Female
  Weight: 20.2 kg

DRUGS (2)
  1. CEFTRIAXONE [Suspect]
     Active Substance: CEFTRIAXONE
     Indication: Product used for unknown indication
     Route: 042
  2. VEMURAFENIB [Concomitant]
     Active Substance: VEMURAFENIB
     Indication: Product used for unknown indication
     Route: 065

REACTIONS (9)
  - Haemoglobin decreased [Unknown]
  - Autoimmune haemolytic anaemia [Recovered/Resolved]
  - Platelet count decreased [Unknown]
  - Activated partial thromboplastin time prolonged [Unknown]
  - Fibrin D dimer increased [Unknown]
  - Hypotension [Recovered/Resolved]
  - Prothrombin time prolonged [Unknown]
  - Vomiting [Recovered/Resolved]
  - Abdominal pain [Recovered/Resolved]
